FAERS Safety Report 4511621-X (Version None)
Quarter: 2004Q4

REPORT INFORMATION
  Report Type: 
  Country: None (occurrence: None)
  Receive Date: 20041129
  Receipt Date: 20041018
  Transmission Date: 20050328
  Serious: Yes (Other)
  Sender: FDA-Public Use
  Company Number: US-BRISTOL-MYERS SQUIBB COMPANY-12735684

PATIENT
  Age: 46 Year
  Sex: Female

DRUGS (5)
  1. ABILIFY [Suspect]
     Indication: SCHIZOPHRENIA
     Route: 048
  2. LITHIUM [Concomitant]
  3. SEROQUEL [Concomitant]
  4. DEPAKOTE [Concomitant]
  5. HALOPERIDOL [Concomitant]

REACTIONS (1)
  - HYPERGLYCAEMIA [None]
